FAERS Safety Report 6767583-8 (Version None)
Quarter: 2010Q2

REPORT INFORMATION
  Report Type: 
  Country: None (occurrence: None)
  Receive Date: 20100614
  Receipt Date: 20100607
  Transmission Date: 20101027
  Serious: Yes (Other)
  Sender: FDA-Public Use
  Company Number: PHHO2005US02662

PATIENT
  Sex: Female
  Weight: 86 kg

DRUGS (1)
  1. CERTICAN [Suspect]
     Indication: HEART TRANSPLANT
     Dosage: 1.5 MG DAILY
     Route: 048
     Dates: start: 20041112

REACTIONS (1)
  - BREAST CANCER [None]
